FAERS Safety Report 5829575-2 (Version None)
Quarter: 2008Q3

REPORT INFORMATION
  Report Type: 
  Country: None (occurrence: None)
  Receive Date: 20080731
  Receipt Date: 20080722
  Transmission Date: 20090109
  Serious: Yes (Hospitalization, Other)
  Sender: FDA-Public Use
  Company Number: IT-PFIZER INC-2008013865

PATIENT
  Sex: Male

DRUGS (1)
  1. CHANTIX [Suspect]
     Indication: WITHDRAWAL SYNDROME
     Route: 048
     Dates: start: 20080102, end: 20080127

REACTIONS (1)
  - RASH MACULO-PAPULAR [None]
